FAERS Safety Report 7078460-X (Version None)
Quarter: 2010Q4

REPORT INFORMATION
  Report Type: 
  Country: None (occurrence: None)
  Receive Date: 20101102
  Receipt Date: 20101020
  Transmission Date: 20110411
  Serious: Yes (Hospitalization, Other)
  Sender: FDA-Public Use
  Company Number: PHFR2010GB02751

PATIENT
  Sex: Male

DRUGS (4)
  1. CLOZARIL [Suspect]
     Indication: SCHIZOPHRENIA
     Dosage: UNK
     Route: 048
     Dates: start: 20091118
  2. CLOZARIL [Suspect]
     Dosage: 150MG/DAY
     Route: 048
     Dates: end: 20100904
  3. VALPROATE SODIUM [Concomitant]
     Indication: MYOCLONUS
     Dosage: HIGH DOSE
     Route: 065
  4. OLANZAPINE [Concomitant]

REACTIONS (12)
  - ABASIA [None]
  - ANKLE FRACTURE [None]
  - CONDITION AGGRAVATED [None]
  - DISORIENTATION [None]
  - DIZZINESS [None]
  - DYSKINESIA [None]
  - DYSPNOEA [None]
  - ENURESIS [None]
  - FALL [None]
  - MYOCLONUS [None]
  - TREMOR [None]
  - WEIGHT INCREASED [None]
